FAERS Safety Report 20448289 (Version 1)
Quarter: 2022Q1

REPORT INFORMATION
  Report Type: Report from Study
  Country: US (occurrence: US)
  Receive Date: 20220209
  Receipt Date: 20220209
  Transmission Date: 20220423
  Serious: Yes (Hospitalization, Other)
  Sender: FDA-Public Use
  Company Number: US-JNJFOC-20220208933

PATIENT

DRUGS (4)
  1. BOSENTAN [Suspect]
     Active Substance: BOSENTAN
     Indication: Pulmonary hypertension
     Route: 048
  2. BOSENTAN [Suspect]
     Active Substance: BOSENTAN
     Indication: Congenital diaphragmatic hernia
  3. ILOPROST [Suspect]
     Active Substance: ILOPROST
     Indication: Congenital diaphragmatic hernia
  4. ILOPROST [Suspect]
     Active Substance: ILOPROST
     Indication: Pulmonary hypertension

REACTIONS (3)
  - Cardiac disorder [Unknown]
  - Product use issue [Unknown]
  - Off label use [Unknown]
